FAERS Safety Report 15681393 (Version 1)
Quarter: 2018Q4

REPORT INFORMATION
  Report Type: Spontaneous
  Country: US (occurrence: US)
  Receive Date: 20181121
  Receipt Date: 20181121
  Transmission Date: 20190205
  Serious: Yes (Other)
  Sender: FDA-Public Use
  Company Number: None

PATIENT
  Age: 86 Year
  Sex: Female
  Weight: 77.4 kg

DRUGS (12)
  1. ONDANSETRON (ZOFRAN-ODT) 8 MG [Concomitant]
  2. POTASSIUM CHLORIDE (K-DUR) 20 MEQ [Concomitant]
  3. ASPIRIN 81 MG [Concomitant]
     Active Substance: ASPIRIN
  4. ACETAMINOPHEN (TYLENOL) 500 MG [Concomitant]
  5. CHOLECALCIFEROL, VITAMIN D3 [Concomitant]
  6. CAPECITABINE. [Suspect]
     Active Substance: CAPECITABINE
     Indication: BREAST CANCER
     Dosage: ?          QUANTITY:3 DF DOSAGE FORM;?
     Route: 048
     Dates: start: 20180808
  7. ANASTROZOLE  (ARIMIDEX) 1MG [Concomitant]
  8. CAPECITABINE (XELODA) 500 MG [Concomitant]
  9. FUROSEMIDE (LASIX) 80 MG TABLET [Concomitant]
  10. LEVOTHYROXINE (SYNTHROID) 25 MCG [Concomitant]
  11. MULTIVITAMINS WITH MINERALS [Concomitant]
     Active Substance: MINERALS\VITAMINS
  12. CALCIUM-CHOLECALCIFEROL D3, 600 MG-200 UNITS/TAB [Concomitant]

REACTIONS (1)
  - Palmar-plantar erythrodysaesthesia syndrome [None]

NARRATIVE: CASE EVENT DATE: 20181111
